FAERS Safety Report 8761875 (Version 4)
Quarter: 2012Q4

REPORT INFORMATION
  Report Type: Report from Study
  Country: JP (occurrence: JP)
  Receive Date: 20120830
  Receipt Date: 20121029
  Transmission Date: 20130627
  Serious: Yes (Disabling, Congenital Anomaly, Other)
  Sender: FDA-Public Use
  Company Number: JP-ABBOTT-12P-087-0971635-00

PATIENT
  Age: 47 None
  Sex: Male
  Weight: 62 kg

DRUGS (5)
  1. HUMIRA [Suspect]
     Indication: CROHN^S DISEASE
     Route: 058
     Dates: start: 20110328, end: 20110328
  2. HUMIRA [Suspect]
     Dates: start: 20110411, end: 20110411
  3. HUMIRA [Suspect]
     Dates: start: 20110425, end: 20110801
  4. SALAZOSULFAPYRIDINE [Concomitant]
     Indication: CROHN^S DISEASE
     Route: 048
     Dates: end: 20110801
  5. FAMOTIDINE [Concomitant]
     Indication: GASTRITIS PROPHYLAXIS
     Route: 048
     Dates: end: 20110801

REACTIONS (18)
  - Anal fistula [Recovering/Resolving]
  - Mass [Unknown]
  - Anal stenosis [Unknown]
  - Lymphadenopathy [Unknown]
  - Metastases to lymph nodes [Unknown]
  - Adenocarcinoma [Unknown]
  - Metastases to peritoneum [Unknown]
  - Induration [Unknown]
  - Metastases to lymph nodes [Unknown]
  - Anal cancer [Recovering/Resolving]
  - Metastatic neoplasm [Unknown]
  - Abscess [Unknown]
  - Pyoderma gangrenosum [Unknown]
  - Adhesion [Unknown]
  - Colonic stenosis [Unknown]
  - Lymphadenopathy [Unknown]
  - Lymphadenopathy [Unknown]
  - Induration [Unknown]
